FAERS Safety Report 5001394-9 (Version None)
Quarter: 2006Q2

REPORT INFORMATION
  Report Type: 
  Country: None (occurrence: None)
  Receive Date: 20060512
  Receipt Date: 20051207
  Transmission Date: 20061013
  Serious: Yes (Hospitalization)
  Sender: FDA-Public Use
  Company Number: US-MERCK-0512USA01028

PATIENT
  Age: 63 Year
  Sex: Female
  Weight: 83 kg

DRUGS (4)
  1. VIOXX [Suspect]
     Indication: BACK PAIN
     Route: 048
     Dates: start: 20000101, end: 20010329
  2. VIOXX [Suspect]
     Route: 048
     Dates: start: 20000101, end: 20010329
  3. GLUCOPHAGE [Concomitant]
     Route: 065
  4. MOTRIN [Concomitant]
     Route: 065

REACTIONS (5)
  - CARDIAC MURMUR [None]
  - DYSPEPSIA [None]
  - GASTROOESOPHAGEAL REFLUX DISEASE [None]
  - MYOCARDIAL INFARCTION [None]
  - WRONG TECHNIQUE IN DRUG USAGE PROCESS [None]
